FAERS Safety Report 19478205 (Version 1)
Quarter: 2021Q2

REPORT INFORMATION
  Report Type: Spontaneous
  Country: IT (occurrence: IT)
  Receive Date: 20210630
  Receipt Date: 20210630
  Transmission Date: 20210717
  Serious: Yes (Hospitalization)
  Sender: FDA-Public Use
  Company Number: IT-SLATE RUN PHARMACEUTICALS-21IT000552

PATIENT

DRUGS (4)
  1. NEBIVOLOL. [Concomitant]
     Active Substance: NEBIVOLOL
     Indication: HYPERTENSION
  2. AZITHROMYCIN USP [Suspect]
     Active Substance: AZITHROMYCIN
     Indication: MYALGIA
  3. AZITHROMYCIN USP [Suspect]
     Active Substance: AZITHROMYCIN
     Indication: DYSPNOEA
  4. AZITHROMYCIN USP [Suspect]
     Active Substance: AZITHROMYCIN
     Indication: PYREXIA
     Dosage: UNK
     Dates: start: 2020, end: 2020

REACTIONS (7)
  - Immune thrombocytopenia [Recovered/Resolved]
  - COVID-19 pneumonia [Recovered/Resolved]
  - Evans syndrome [Unknown]
  - Cerebral microhaemorrhage [Unknown]
  - Autoimmune thyroiditis [Unknown]
  - Haemolytic anaemia [Recovered/Resolved]
  - Subdural haematoma [Recovered/Resolved]

NARRATIVE: CASE EVENT DATE: 2020
